FAERS Safety Report 4848086-4 (Version None)
Quarter: 2005Q4

REPORT INFORMATION
  Report Type: 
  Country: None (occurrence: None)
  Receive Date: 20051205
  Receipt Date: 20051205
  Transmission Date: 20060501
  Serious: Yes (Other)
  Sender: FDA-Public Use
  Company Number: None

PATIENT
  Age: 69 Year
  Sex: Male
  Weight: 86.1834 kg

DRUGS (2)
  1. TRICOR [Suspect]
     Indication: BLOOD CHOLESTEROL INCREASED
     Dosage: 1   DAILY   PO
     Route: 048
  2. CRESTOR [Suspect]
     Indication: BLOOD CHOLESTEROL INCREASED
     Dosage: 1   DAILY   PO
     Route: 048

REACTIONS (3)
  - ARTHRALGIA [None]
  - ASTHENIA [None]
  - URTICARIA [None]
